FAERS Safety Report 5084474-1 (Version None)
Quarter: 2006Q3

REPORT INFORMATION
  Report Type: 
  Country: None (occurrence: None)
  Receive Date: 20060821
  Receipt Date: 20060816
  Transmission Date: 20061208
  Serious: Yes (Hospitalization)
  Sender: FDA-Public Use
  Company Number: FR-AVENTIS-200612828FR

PATIENT
  Age: 52 Year
  Sex: Female
  Weight: 48 kg

DRUGS (4)
  1. FLAGYL [Suspect]
     Indication: HAEMORRHOIDS
     Route: 048
     Dates: start: 20060515, end: 20060526
  2. PROFENID [Concomitant]
     Indication: HAEMORRHOIDS
     Route: 048
     Dates: start: 20060515, end: 20060526
  3. SOLUPRED [Concomitant]
     Indication: ERYTHEMA MULTIFORME
     Route: 048
     Dates: end: 20060526
  4. PROPRANOLOL [Concomitant]
     Indication: DYSKINESIA

REACTIONS (3)
  - ALANINE AMINOTRANSFERASE INCREASED [None]
  - ERYTHEMA MULTIFORME [None]
  - TRANSAMINASES INCREASED [None]
